FAERS Safety Report 15651087 (Version 2)
Quarter: 2018Q4

REPORT INFORMATION
  Report Type: Spontaneous
  Country: US (occurrence: US)
  Receive Date: 20181123
  Receipt Date: 20181126
  Transmission Date: 20190205
  Serious: No
  Sender: FDA-Public Use
  Company Number: US-TEVA-2018-US-976897

PATIENT
  Age: 63 Year
  Sex: Female

DRUGS (2)
  1. TRAZODONE [Concomitant]
     Active Substance: TRAZODONE HYDROCHLORIDE
     Indication: SLEEP DISORDER
  2. CLONAZEPAM. [Suspect]
     Active Substance: CLONAZEPAM
     Indication: SLEEP DISORDER
     Route: 065
     Dates: start: 2005

REACTIONS (5)
  - Feeling abnormal [Unknown]
  - Insomnia [Unknown]
  - Headache [Unknown]
  - Product substitution issue [Unknown]
  - Depression [Unknown]

NARRATIVE: CASE EVENT DATE: 2005
